FAERS Safety Report 7999465-8 (Version None)
Quarter: 2011Q4

REPORT INFORMATION
  Report Type: 
  Country: None (occurrence: None)
  Receive Date: 20111221
  Receipt Date: 20111219
  Transmission Date: 20120403
  Serious: No
  Sender: FDA-Public Use
  Company Number: US-PFIZER INC-2011308286

PATIENT
  Sex: Female
  Weight: 23.129 kg

DRUGS (3)
  1. ALAVERT [Suspect]
     Indication: HYPERSENSITIVITY
  2. ALAVERT [Suspect]
     Indication: RHINORRHOEA
     Dosage: UNK, 1X/DAY
     Route: 048
     Dates: start: 20111219, end: 20111219
  3. ALAVERT [Suspect]
     Indication: COUGH

REACTIONS (3)
  - HYPERSENSITIVITY [None]
  - HEART RATE INCREASED [None]
  - TREMOR [None]
